FAERS Safety Report 25422274 (Version 1)
Quarter: 2025Q2

REPORT INFORMATION
  Report Type: Spontaneous
  Country: US (occurrence: None)
  Receive Date: 20250610
  Receipt Date: 20250610
  Transmission Date: 20250717
  Serious: Yes (Hospitalization)
  Sender: FDA-CTU
  Company Number: None

PATIENT
  Age: 87 Year
  Sex: Male
  Weight: 79 kg

DRUGS (2)
  1. ELIQUIS [Suspect]
     Active Substance: APIXABAN
     Indication: Atrial fibrillation
     Dosage: 5.00 MG TWICE A DAY ORAL
     Route: 048
     Dates: start: 20191010
  2. PREDNISONE [Suspect]
     Active Substance: PREDNISONE

REACTIONS (5)
  - Melaena [None]
  - Sinusitis [None]
  - Haemoglobin decreased [None]
  - Gastritis [None]
  - Duodenitis [None]

NARRATIVE: CASE EVENT DATE: 20250120
